FAERS Safety Report 14038479 (Version 4)
Quarter: 2017Q4

REPORT INFORMATION
  Report Type: Spontaneous
  Country: US (occurrence: MX)
  Receive Date: 20171004
  Receipt Date: 20171027
  Transmission Date: 20180321
  Serious: Yes (Other)
  Sender: FDA-Public Use
  Company Number: US-SUNOVION-2017SUN004273

PATIENT
  Age: 53 Year
  Sex: Female
  Weight: 110 kg

DRUGS (4)
  1. JANUMET [Concomitant]
     Active Substance: METFORMIN HYDROCHLORIDE\SITAGLIPTIN PHOSPHATE
  2. OLAPREXA [Concomitant]
  3. INDACATEROL AND GLYCOPYRROLATE [Suspect]
     Active Substance: GLYCOPYRROLATE\INDACATEROL MALEATE
     Indication: BRONCHIAL HYPERREACTIVITY
     Dosage: 2 IU, QD (2 INHALATIONS EVERY 24 HOURS)
     Route: 055
  4. LORATADINE. [Concomitant]
     Active Substance: LORATADINE

REACTIONS (12)
  - Hypertensive crisis [Unknown]
  - Aphasia [Unknown]
  - Hemiparesis [Unknown]
  - Wrong technique in product usage process [Unknown]
  - Dyspnoea [Unknown]
  - Throat tightness [Unknown]
  - Paralysis [Recovered/Resolved with Sequelae]
  - Flushing [Unknown]
  - Product use in unapproved indication [Unknown]
  - Depressed level of consciousness [Unknown]
  - Cerebrovascular disorder [Not Recovered/Not Resolved]
  - Cough [Unknown]

NARRATIVE: CASE EVENT DATE: 20170815
